FAERS Safety Report 16337165 (Version 3)
Quarter: 2019Q2

REPORT INFORMATION
  Report Type: Report from Study
  Country: CA (occurrence: CA)
  Receive Date: 20190521
  Receipt Date: 20190619
  Transmission Date: 20190711
  Serious: Yes (Other)
  Sender: FDA-Public Use
  Company Number: CA-ROCHE-2294357

PATIENT
  Age: 67 Year
  Sex: Male

DRUGS (8)
  1. ROSUVASTATIN. [Concomitant]
     Active Substance: ROSUVASTATIN
  2. AVASTIN [Suspect]
     Active Substance: BEVACIZUMAB
     Indication: BRAIN NEOPLASM MALIGNANT
  3. RANITIDINE. [Concomitant]
     Active Substance: RANITIDINE
  4. LEVOTHYROXINE. [Concomitant]
     Active Substance: LEVOTHYROXINE
  5. DEXAMETHASONE. [Concomitant]
     Active Substance: DEXAMETHASONE
  6. AVASTIN [Suspect]
     Active Substance: BEVACIZUMAB
     Indication: ASTROCYTOMA
     Route: 042
     Dates: start: 20190306
  7. TAMSULOSIN [Concomitant]
     Active Substance: TAMSULOSIN
  8. XARELTO [Concomitant]
     Active Substance: RIVAROXABAN

REACTIONS (7)
  - Hypotension [Recovered/Resolved]
  - Hypertension [Unknown]
  - Herpes zoster [Recovering/Resolving]
  - Hypotension [Recovered/Resolved]
  - Eastern Cooperative Oncology Group performance status worsened [Unknown]
  - Oxygen saturation decreased [Unknown]
  - Blood pressure systolic decreased [Recovered/Resolved]

NARRATIVE: CASE EVENT DATE: 20190327
